FAERS Safety Report 8814948 (Version 4)
Quarter: 2013Q2

REPORT INFORMATION
  Report Type: Report from Study
  Country: JP (occurrence: JP)
  Receive Date: 20120928
  Receipt Date: 20130607
  Transmission Date: 20140414
  Serious: Yes (Hospitalization, Other)
  Sender: FDA-Public Use
  Company Number: JP-VERTEX PHARMACEUTICAL INC.-AE-2012-010242

PATIENT
  Age: 72 Year
  Sex: Male

DRUGS (13)
  1. VX-950 (TELAPREVIR) [Suspect]
     Indication: CHRONIC HEPATITIS C
     Dosage: 1500 MG, QD
     Route: 048
     Dates: start: 20120403, end: 20120610
  2. VX-950 (TELAPREVIR) [Suspect]
     Dosage: 750 MG, QD
     Route: 048
     Dates: start: 20120611, end: 20120612
  3. PEGINTERFERON ALFA-2B [Suspect]
     Indication: CHRONIC HEPATITIS C
     Dosage: 40 ?G, QW
     Route: 058
     Dates: start: 20120403, end: 20120506
  4. PEGINTERFERON ALFA-2B [Suspect]
     Dosage: 20 ?G, QW
     Route: 058
     Dates: start: 20120507, end: 20120513
  5. PEGINTERFERON ALFA-2B [Suspect]
     Dosage: 40 ?G, QW
     Route: 058
     Dates: start: 20120514, end: 20120610
  6. REBETOL [Suspect]
     Indication: CHRONIC HEPATITIS C
     Dosage: 400 MG, QD
     Route: 048
     Dates: start: 20120403, end: 20120506
  7. REBETOL [Suspect]
     Dosage: 200 MG, QD
     Route: 048
     Dates: start: 20120507, end: 20120612
  8. SLOW-K [Concomitant]
     Dosage: 1200 MG, QD
     Route: 048
     Dates: start: 20120521, end: 20120612
  9. GASMOTIN [Concomitant]
     Dosage: 15 MG, QD
     Route: 048
     Dates: start: 20120604, end: 20120618
  10. TRAVELMIN [Concomitant]
     Dosage: 3 TABLETS, QD
     Route: 048
     Dates: start: 20120612, end: 20120618
  11. OMEPRAL [Concomitant]
     Dosage: 20 MG, QD
     Route: 048
     Dates: start: 20120625, end: 20120723
  12. GASTER D [Concomitant]
     Dosage: 20 MG, QD
     Route: 048
     Dates: start: 20120423, end: 20120618
  13. SOLITA T [Concomitant]
     Dosage: 500 ML, QD
     Route: 042
     Dates: start: 20120611, end: 20120619

REACTIONS (3)
  - Decreased appetite [Recovered/Resolved]
  - Anaemia [Recovered/Resolved]
  - Vomiting [Recovered/Resolved]
